FAERS Safety Report 25390623 (Version 1)
Quarter: 2025Q2

REPORT INFORMATION
  Report Type: Spontaneous
  Country: FR (occurrence: FR)
  Receive Date: 20250603
  Receipt Date: 20250603
  Transmission Date: 20250716
  Serious: Yes (Life-Threatening, Hospitalization)
  Sender: CHEPLAPHARM
  Company Number: None

PATIENT
  Age: 32 Year
  Sex: Male

DRUGS (6)
  1. CLONAZEPAM [Suspect]
     Active Substance: CLONAZEPAM
     Dosage: DAILY DOSE: 2 MILLIGRAM
  2. COCAINE [Suspect]
     Active Substance: COCAINE
     Route: 055
  3. METHADONE HYDROCHLORIDE [Suspect]
     Active Substance: METHADONE HYDROCHLORIDE
     Dosage: 3 TIMES A WEEK
  4. LYRICA [Suspect]
     Active Substance: PREGABALIN
  5. DIAZEPAM [Suspect]
     Active Substance: DIAZEPAM
  6. OXYBATE [Suspect]
     Active Substance: OXYBATE

REACTIONS (6)
  - Drug abuse [Unknown]
  - Coma [Recovered/Resolved]
  - Acute respiratory failure [Recovered/Resolved]
  - Miosis [Recovered/Resolved]
  - Vomiting [Recovered/Resolved]
  - Cardiac failure congestive [Unknown]

NARRATIVE: CASE EVENT DATE: 20250327
